FAERS Safety Report 8138839 (Version 2)
Quarter: 2012Q4

REPORT INFORMATION
  Report Type: Report from Study
  Country: US (occurrence: US)
  Receive Date: 20110915
  Receipt Date: 20121228
  Transmission Date: 20130627
  Serious: Yes (Hospitalization, Other)
  Sender: FDA-Public Use
  Company Number: US-ABBOTT-11P-163-0719666-00

PATIENT
  Sex: Male
  Weight: 72.64 kg

DRUGS (13)
  1. HUMIRA 40 MG/0.8 ML PEN [Suspect]
     Indication: CROHN^S DISEASE
     Dates: start: 200901, end: 2011
  2. HUMIRA 40 MG/0.8 ML PEN [Suspect]
     Dates: start: 201103
  3. SIMVASTATIN [Concomitant]
     Indication: CARDIAC DISORDER
  4. SIMVASTATIN [Concomitant]
     Indication: PROPHYLAXIS
  5. SIMVASTATIN [Concomitant]
     Indication: CARDIAC DISORDER
  6. METOPROLOL [Concomitant]
     Indication: CARDIAC DISORDER
  7. METOPROLOL [Concomitant]
     Indication: PROPHYLAXIS
  8. METOPROLOL [Concomitant]
     Indication: CARDIAC DISORDER
  9. ASPIRIN [Concomitant]
     Indication: CARDIAC DISORDER
  10. ASPIRIN [Concomitant]
     Indication: PROPHYLAXIS
  11. PULMICORT [Concomitant]
     Indication: ASTHMA
  12. ALBUTEROL MDI [Concomitant]
     Indication: ASTHMA
  13. AMITRIPTYLINE [Concomitant]
     Indication: PRODUCT USED FOR UNKNOWN INDICATION

REACTIONS (15)
  - Myocardial infarction [Recovered/Resolved]
  - Crohn^s disease [Recovering/Resolving]
  - Asthma [Not Recovered/Not Resolved]
  - Drug ineffective [Unknown]
  - Coronary artery occlusion [Unknown]
  - Abdominal pain [Unknown]
  - Coronary artery occlusion [Unknown]
  - Dyspnoea [Recovered/Resolved]
  - Injection site bruising [Unknown]
  - Tinea pedis [Unknown]
  - Epistaxis [Unknown]
  - Scab [Unknown]
  - Ear injury [Unknown]
  - Increased tendency to bruise [Unknown]
  - Crohn^s disease [Unknown]
